FAERS Safety Report 4486706-7 (Version None)
Quarter: 2004Q4

REPORT INFORMATION
  Report Type: 
  Country: None (occurrence: None)
  Receive Date: 20041021
  Receipt Date: 20041001
  Transmission Date: 20050328
  Serious: Yes (Hospitalization)
  Sender: FDA-Public Use
  Company Number: DE_041014404

PATIENT
  Sex: Female

DRUGS (1)
  1. DULOXETINE HYDROCHLORIDE [Suspect]
     Indication: STRESS INCONTINENCE
     Dosage: 40 MG/2 DAY
     Dates: end: 20040917

REACTIONS (2)
  - HYPERHIDROSIS [None]
  - SYNCOPE [None]
